FAERS Safety Report 11456932 (Version 2)
Quarter: 2015Q3

REPORT INFORMATION
  Report Type: Report from Study
  Country: NL (occurrence: NL)
  Receive Date: 20150904
  Receipt Date: 20150923
  Transmission Date: 20151125
  Serious: Yes (Hospitalization, Other)
  Sender: FDA-Public Use
  Company Number: NL-AMGEN-NLDSL2015089669

PATIENT
  Age: 70 Year
  Sex: Male

DRUGS (3)
  1. XGEVA [Suspect]
     Active Substance: DENOSUMAB
     Indication: PROPHYLAXIS
     Dosage: 1.7ML (120MG), Q4WK
     Route: 058
  2. MORPHINE [Concomitant]
     Active Substance: MORPHINE
  3. CALCICHEW D3 [Concomitant]
     Active Substance: CALCIUM\CHOLECALCIFEROL
     Dosage: 500 MG/400 IE
     Route: 048

REACTIONS (2)
  - Hospitalisation [Unknown]
  - Terminal state [Unknown]

NARRATIVE: CASE EVENT DATE: 20150814
